FAERS Safety Report 6005026-2 (Version None)
Quarter: 2008Q4

REPORT INFORMATION
  Report Type: 
  Country: None (occurrence: None)
  Receive Date: 20081216
  Receipt Date: 20080425
  Transmission Date: 20090506
  Serious: No
  Sender: FDA-Public Use
  Company Number: US-BAUSCH-2008BL001869

PATIENT
  Age: 25 Year
  Sex: Male
  Weight: 58 kg

DRUGS (2)
  1. NEOMYCIN AND POLYMXIN B SULFATES AND HYDROCORTISONE [Suspect]
     Route: 047
     Dates: start: 20080425, end: 20080425
  2. BLINK LUBRICANT EYE DROP [Concomitant]
     Indication: CORRECTIVE LENS USER
     Route: 047

REACTIONS (2)
  - EYE IRRITATION [None]
  - MEDICATION ERROR [None]
